FAERS Safety Report 6060437-4 (Version None)
Quarter: 2009Q1

REPORT INFORMATION
  Report Type: 
  Country: None (occurrence: None)
  Receive Date: 20090129
  Receipt Date: 20090108
  Transmission Date: 20090719
  Serious: Yes (Other)
  Sender: FDA-Public Use
  Company Number: RSP20090002

PATIENT
  Age: 67 Year
  Sex: Female

DRUGS (14)
  1. RISPERIDONE [Suspect]
     Dosage: 4 MG, TID, ORAL
     Route: 048
     Dates: start: 20081215, end: 20090104
  2. SINEMET [Suspect]
     Indication: PARKINSON'S DISEASE
  3. COMTAN [Suspect]
     Indication: PARKINSON'S DISEASE
  4. AMITRIPTYLINE HCL [Concomitant]
  5. ATENOLOL [Concomitant]
  6. LEXAPRO [Concomitant]
  7. LISINOPRIL [Concomitant]
  8. FOLIC ACID [Concomitant]
  9. XANAX [Concomitant]
  10. PREVACID [Concomitant]
  11. TORSEMIDE [Concomitant]
  12. MIRALAX [Concomitant]
  13. MORPHINE [Concomitant]
  14. MS CONTIN [Concomitant]

REACTIONS (9)
  - CONFUSIONAL STATE [None]
  - DRUG DISPENSING ERROR [None]
  - DRUG INTERACTION [None]
  - FATIGUE [None]
  - LETHARGY [None]
  - PHOTOPHOBIA [None]
  - SEDATION [None]
  - UNRESPONSIVE TO STIMULI [None]
  - WRONG DRUG ADMINISTERED [None]
